FAERS Safety Report 14526066 (Version 2)
Quarter: 2019Q1

REPORT INFORMATION
  Report Type: Spontaneous
  Country: PT (occurrence: PT)
  Receive Date: 20180213
  Receipt Date: 20190207
  Transmission Date: 20190417
  Serious: Yes (Hospitalization, Other)
  Sender: FDA-Public Use
  Company Number: PT-MYLANLABS-2018M1009148

PATIENT
  Age: 61 Year
  Sex: Female

DRUGS (4)
  1. GENTAMICIN. [Concomitant]
     Active Substance: GENTAMICIN
     Indication: ENDOCARDITIS
     Dosage: 1 DF, QD
     Route: 065
     Dates: start: 201702, end: 201703
  2. CAPTOPRIL. [Suspect]
     Active Substance: CAPTOPRIL
     Indication: CARDIAC FAILURE
     Dosage: 1 DF, QD
     Route: 065
     Dates: start: 201702, end: 201703
  3. ESOMEPRAZOLE. [Suspect]
     Active Substance: ESOMEPRAZOLE MAGNESIUM
     Indication: PROPHYLAXIS
     Dosage: 1 DF, QD
     Route: 065
     Dates: start: 201702, end: 201703
  4. VANCOMYCIN [Suspect]
     Active Substance: VANCOMYCIN
     Indication: ENDOCARDITIS
     Dosage: 1 DF, QD
     Route: 065
     Dates: start: 201702, end: 201703

REACTIONS (3)
  - Renal injury [Unknown]
  - Tubulointerstitial nephritis [Unknown]
  - Drug reaction with eosinophilia and systemic symptoms [Unknown]

NARRATIVE: CASE EVENT DATE: 201702
